FAERS Safety Report 9290592 (Version 1)
Quarter: 2013Q2

REPORT INFORMATION
  Report Type: Spontaneous
  Country: GB (occurrence: GB)
  Receive Date: 20130515
  Receipt Date: 20130515
  Transmission Date: 20140414
  Serious: Yes (Other)
  Sender: FDA-Public Use
  Company Number: GB-JNJFOC-20130504295

PATIENT
  Age: 50 Year
  Sex: Female

DRUGS (7)
  1. XARELTO [Suspect]
     Indication: PRODUCT USED FOR UNKNOWN INDICATION
     Route: 048
     Dates: start: 201304, end: 201304
  2. LEVOTHYROXINE SODIUM [Concomitant]
     Route: 065
  3. DOXYCYCLINE [Concomitant]
     Route: 065
  4. WARFARIN [Concomitant]
     Route: 065
  5. ATORVASTATIN [Concomitant]
     Route: 065
  6. FRAGMIN [Concomitant]
     Route: 065
  7. MOMETASONE FUROATE [Concomitant]
     Route: 065

REACTIONS (5)
  - Lip pain [Recovered/Resolved]
  - Abdominal pain upper [Recovered/Resolved]
  - Joint swelling [Recovered/Resolved]
  - Lip swelling [Recovered/Resolved]
  - Oedema mouth [Recovered/Resolved]
